FAERS Safety Report 4374305-7 (Version None)
Quarter: 2004Q2

REPORT INFORMATION
  Report Type: 
  Country: None (occurrence: None)
  Receive Date: 20040608
  Receipt Date: 20040608
  Transmission Date: 20050107
  Serious: Yes (Other)
  Sender: FDA-Public Use
  Company Number: None

PATIENT
  Age: 57 Year
  Sex: Female
  Weight: 73.9363 kg

DRUGS (5)
  1. ZOCOR [Suspect]
     Indication: BLOOD TRIGLYCERIDES INCREASED
     Dosage: 20 MG A DAY ORAL
     Route: 048
     Dates: start: 20040210, end: 20040528
  2. VIOXX [Suspect]
     Indication: OSTEOARTHRITIS
     Dosage: ONCE A DAY ORAL
     Route: 048
     Dates: start: 20040210, end: 20040528
  3. HYDROCHLOROTHIAZIDE [Concomitant]
  4. ALLEGRA [Concomitant]
  5. ACIPHEX [Concomitant]

REACTIONS (2)
  - DIZZINESS [None]
  - NAUSEA [None]
